FAERS Safety Report 12265118 (Version 3)
Quarter: 2016Q2

REPORT INFORMATION
  Report Type: Report from Study
  Country: KR (occurrence: KR)
  Receive Date: 20160413
  Receipt Date: 20160617
  Transmission Date: 20160815
  Serious: Yes (Hospitalization, Other)
  Sender: FDA-Public Use
  Company Number: KR-GLAXOSMITHKLINE-KR2016044827

PATIENT
  Age: 75 Year
  Sex: Male
  Weight: 54 kg

DRUGS (5)
  1. PHAZYME COMPLEX TAB [Concomitant]
     Route: 048
     Dates: start: 20160331, end: 20160331
  2. MOSAPRON TAB [Concomitant]
     Route: 048
     Dates: start: 20160331, end: 20160331
  3. PHAZYME COMPLEX TAB [Concomitant]
     Indication: PROPHYLAXIS
     Route: 048
     Dates: start: 20160328, end: 20160329
  4. FLUTICASONE FUROATE + VILANTEROL TRIFENATATE [Suspect]
     Active Substance: FLUTICASONE FUROATE\VILANTEROL TRIFENATATE
     Indication: CHRONIC OBSTRUCTIVE PULMONARY DISEASE
     Dosage: 100/25 UG, QD
     Route: 055
     Dates: start: 20160321
  5. MOSAPRON TAB [Concomitant]
     Indication: PROPHYLAXIS
     Route: 048
     Dates: start: 20160328, end: 20160329

REACTIONS (2)
  - Atrial fibrillation [Not Recovered/Not Resolved]
  - Chronic obstructive pulmonary disease [Recovered/Resolved]

NARRATIVE: CASE EVENT DATE: 20160328
